FAERS Safety Report 21092545 (Version 4)
Quarter: 2022Q4

REPORT INFORMATION
  Report Type: Report from Study
  Country: AU (occurrence: AU)
  Receive Date: 20220718
  Receipt Date: 20221027
  Transmission Date: 20230113
  Serious: Yes (Hospitalization)
  Sender: FDA-Public Use
  Company Number: AU-BRISTOL-MYERS SQUIBB COMPANY-2022-073388

PATIENT
  Age: 61 Year
  Sex: Female
  Weight: 65.6 kg

DRUGS (33)
  1. LENALIDOMIDE [Suspect]
     Active Substance: LENALIDOMIDE
     Indication: Non-Hodgkin^s lymphoma
     Dosage: LAST DOSE: 04-JUL-2022
     Route: 048
     Dates: start: 20211229
  2. LENALIDOMIDE [Suspect]
     Active Substance: LENALIDOMIDE
     Route: 048
     Dates: start: 20220621
  3. RITUXIMAB [Suspect]
     Active Substance: RITUXIMAB
     Indication: Non-Hodgkin^s lymphoma
     Dosage: LAST DOSE: 15-JUN-2022?700 MG, DAY 1 OF EACH CYCLE
     Route: 041
     Dates: start: 20211229
  4. RITUXIMAB [Suspect]
     Active Substance: RITUXIMAB
     Route: 041
     Dates: start: 20220518
  5. RITUXIMAB [Suspect]
     Active Substance: RITUXIMAB
     Dosage: DAY 1 OF EACH CYCLE.
     Route: 041
     Dates: start: 20220615
  6. BACTRIM DS [Concomitant]
     Active Substance: SULFAMETHOXAZOLE\TRIMETHOPRIM
     Route: 048
  7. BACTRIM DS [Concomitant]
     Active Substance: SULFAMETHOXAZOLE\TRIMETHOPRIM
     Indication: Product used for unknown indication
     Dosage: 2 DF 1 IN 2 WEEK
     Route: 048
     Dates: start: 20211028
  8. BACTRIM DS [Concomitant]
     Active Substance: SULFAMETHOXAZOLE\TRIMETHOPRIM
  9. VALACYCLOVIR HYDROCHLORIDE [Concomitant]
     Active Substance: VALACYCLOVIR HYDROCHLORIDE
     Route: 048
  10. VALACYCLOVIR HYDROCHLORIDE [Concomitant]
     Active Substance: VALACYCLOVIR HYDROCHLORIDE
     Indication: Product used for unknown indication
     Dosage: 1 IN 2 DAY
     Route: 048
     Dates: start: 20211028
  11. VALACYCLOVIR HYDROCHLORIDE [Concomitant]
     Active Substance: VALACYCLOVIR HYDROCHLORIDE
     Route: 048
  12. METOPROLOL [Concomitant]
     Active Substance: METOPROLOL
     Indication: Atrial fibrillation
     Dosage: 2 IN 1 D
     Route: 048
  13. METOPROLOL [Concomitant]
     Active Substance: METOPROLOL
     Dosage: 2 IN 1 D
     Route: 048
  14. NITRAZEPAM [Concomitant]
     Active Substance: NITRAZEPAM
     Indication: Depression
     Dosage: 1 IN 1 D
     Route: 048
  15. NITRAZEPAM [Concomitant]
     Active Substance: NITRAZEPAM
     Indication: Product used for unknown indication
     Dosage: 1 IN 1 D
     Route: 048
  16. NITRAZEPAM [Concomitant]
     Active Substance: NITRAZEPAM
     Dosage: 1 IN 1 D
     Route: 048
  17. CRESTOR [Concomitant]
     Active Substance: ROSUVASTATIN CALCIUM
     Indication: Dyslipidaemia
     Dosage: 1 IN 1 D
     Route: 048
  18. CRESTOR [Concomitant]
     Active Substance: ROSUVASTATIN CALCIUM
     Dosage: 1 IN 1 D
     Route: 048
  19. CRESTOR [Concomitant]
     Active Substance: ROSUVASTATIN CALCIUM
     Dosage: 1 IN 1 D
     Route: 048
  20. PANADOL [Concomitant]
     Active Substance: ACETAMINOPHEN
     Indication: Pain
     Dosage: 1 IN 1 AS REQUIRED
     Route: 048
  21. PANADOL [Concomitant]
     Active Substance: ACETAMINOPHEN
     Dosage: 1 IN 1 AS REQUIRED
     Route: 048
  22. PANADOL [Concomitant]
     Active Substance: ACETAMINOPHEN
     Dosage: 1 IN 1 AS REQUIRED
     Route: 048
  23. MAGNESIUM [Concomitant]
     Active Substance: MAGNESIUM
     Indication: Muscle spasms
     Dosage: 2 IN 1 D
     Route: 048
  24. MAGNESIUM [Concomitant]
     Active Substance: MAGNESIUM
     Dosage: 1 DF 1 IN 2 D
     Route: 048
     Dates: start: 20220108
  25. MAGNESIUM [Concomitant]
     Active Substance: MAGNESIUM
     Dosage: 2 IN 1 D
     Route: 048
  26. ESOMEPRAZOLE [Concomitant]
     Active Substance: ESOMEPRAZOLE
     Indication: Product used for unknown indication
     Dosage: 1 IN 1 D
     Route: 048
  27. APIXABAN [Concomitant]
     Active Substance: APIXABAN
     Indication: Pulmonary embolism
     Dosage: 2 IN 1 D
     Route: 048
  28. POTASSIUM CHLORIDE [Concomitant]
     Active Substance: POTASSIUM CHLORIDE
     Indication: Hypokalaemia
     Dosage: 1 IN 1 D
     Route: 048
     Dates: end: 20220709
  29. POTASSIUM CHLORIDE [Concomitant]
     Active Substance: POTASSIUM CHLORIDE
     Dosage: 1 IN 1 AS REQUIRED
     Route: 042
     Dates: end: 20220705
  30. MAGNESIUM SULFATE [Concomitant]
     Active Substance: MAGNESIUM SULFATE
     Dosage: 1 IN 1 AS REQUIRED
     Route: 042
     Dates: end: 20220705
  31. ALBUMIN HUMAN [Concomitant]
     Active Substance: ALBUMIN HUMAN
     Dosage: 1 IN 1 AS REQUIRED
     Route: 042
     Dates: end: 20220705
  32. HUMAN RED BLOOD CELL [Concomitant]
     Active Substance: HUMAN RED BLOOD CELL
     Indication: Anaemia
     Dosage: 1 IN 1 AS REQUIRED
     Route: 042
     Dates: end: 20220705
  33. HUMAN RED BLOOD CELL [Concomitant]
     Active Substance: HUMAN RED BLOOD CELL
     Dosage: 1 IN 1 AS REQUIRED
     Route: 042
     Dates: end: 20220707

REACTIONS (2)
  - COVID-19 [Recovered/Resolved]
  - Lower respiratory tract infection [Recovered/Resolved]

NARRATIVE: CASE EVENT DATE: 20220704
